FAERS Safety Report 13693769 (Version 1)
Quarter: 2017Q2

REPORT INFORMATION
  Report Type: Spontaneous
  Country: SG (occurrence: SG)
  Receive Date: 20170627
  Receipt Date: 20170627
  Transmission Date: 20170830
  Serious: Yes (Other)
  Sender: FDA-Public Use
  Company Number: PHHY2017SG090933

PATIENT
  Age: 45 Year
  Sex: Male

DRUGS (2)
  1. SECUKINUMAB [Suspect]
     Active Substance: SECUKINUMAB
     Indication: PSORIASIS
     Dosage: 300 MG, UNK
     Route: 065
  2. SECUKINUMAB [Suspect]
     Active Substance: SECUKINUMAB
     Indication: PSORIATIC ARTHROPATHY

REACTIONS (7)
  - Neck pain [Recovering/Resolving]
  - Ocular hyperaemia [Recovering/Resolving]
  - Psoriatic arthropathy [Recovering/Resolving]
  - Uveitis [Recovering/Resolving]
  - Spondylitis [Recovering/Resolving]
  - Vision blurred [Recovering/Resolving]
  - Spinal pain [Recovering/Resolving]
